FAERS Safety Report 7552673-2 (Version None)
Quarter: 2011Q2

REPORT INFORMATION
  Report Type: 
  Country: None (occurrence: None)
  Receive Date: 20110616
  Receipt Date: 20110606
  Transmission Date: 20111010
  Serious: Yes (Death, Other)
  Sender: FDA-Public Use
  Company Number: US-BAYER-2010-002271

PATIENT
  Age: 54 Year
  Sex: Male

DRUGS (21)
  1. LASIX [Concomitant]
     Dosage: 60 MG, TID
     Route: 048
  2. SILDENAFIL CITRATE [Concomitant]
     Dosage: 50 MG, TID
     Route: 048
  3. VIAGRA [Concomitant]
     Indication: DECREASED VENTRICULAR AFTERLOAD
     Dosage: 5 MG, QD
     Route: 048
     Dates: start: 20061207
  4. NATRECOR [Concomitant]
     Dosage: 0.01MG/KG/MIN
     Route: 042
     Dates: start: 20061101
  5. DIGOXIN [Concomitant]
     Dosage: 0.125 MG, QD
     Route: 048
  6. LIPITOR [Concomitant]
     Dosage: 40 MG, QD
     Route: 048
  7. NITROGLYCERIN [Concomitant]
     Dosage: 0.4 MG AS NEEDED
     Route: 060
  8. PLASMA [Concomitant]
     Route: 042
  9. METOPROLOL TARTRATE [Concomitant]
     Dosage: 50 MG, BID
     Route: 048
  10. RED BLOOD CELLS [Concomitant]
     Route: 042
  11. COREG [Concomitant]
     Dosage: 25 MG, TID
     Route: 048
  12. LEXAPRO [Concomitant]
     Dosage: 10 MG, QD
     Route: 048
  13. COUMADIN [Concomitant]
     Dosage: 7 MG, QD
     Route: 048
     Dates: start: 20061208
  14. TRASYLOL [Suspect]
     Indication: PRODUCT USED FOR UNKNOWN INDICATION
     Dosage: UNK
     Route: 042
     Dates: start: 20061225
  15. HUMALOG [Concomitant]
     Dosage: 10 UNITS EVERY AM AND 10 UNITS EVERY PM
     Route: 058
  16. ACETYLSALICYLIC ACID SRT [Concomitant]
     Dosage: 81 MG, QD
     Route: 048
  17. VANCOMYCIN [Concomitant]
     Dosage: 1 G, QD
     Route: 042
     Dates: start: 20061209
  18. AMIODARONE HCL [Concomitant]
     Dosage: 200 MG, QD
     Route: 048
  19. LANTUS [Concomitant]
     Dosage: 30 UNITS EVERY HOUR OF SLEEP
     Route: 058
  20. MILRINONE [Concomitant]
     Dosage: 10 MG
     Route: 042
  21. SPIRONOLACTONE [Concomitant]
     Dosage: 50 MG, QD
     Route: 048

REACTIONS (5)
  - INJURY [None]
  - PAIN [None]
  - RENAL FAILURE [None]
  - RENAL FAILURE ACUTE [None]
  - DEATH [None]
